FAERS Safety Report 25269790 (Version 1)
Quarter: 2025Q2

REPORT INFORMATION
  Report Type: Spontaneous
  Country: US (occurrence: US)
  Receive Date: 20250505
  Receipt Date: 20250505
  Transmission Date: 20250717
  Serious: No
  Sender: DR REDDYS
  Company Number: US-DRL-USA-USA/2025/04/006235

PATIENT

DRUGS (2)
  1. ZENATANE [Suspect]
     Active Substance: ISOTRETINOIN
     Indication: Product used for unknown indication
     Route: 065
  2. ZENATANE [Suspect]
     Active Substance: ISOTRETINOIN
     Route: 065

REACTIONS (1)
  - Adverse event [Unknown]
